FAERS Safety Report 9604121 (Version 1)
Quarter: 2013Q4

REPORT INFORMATION
  Report Type: Spontaneous
  Country: FR (occurrence: FR)
  Receive Date: 20131008
  Receipt Date: 20131008
  Transmission Date: 20140711
  Serious: Yes (Hospitalization)
  Sender: FDA-Public Use
  Company Number: FR-AMGEN-FRASP2013070119

PATIENT
  Age: 57 Year
  Sex: Female

DRUGS (2)
  1. ENBREL [Suspect]
     Indication: PSORIATIC ARTHROPATHY
     Dosage: 1 UNK, WEEKLY
     Route: 058
     Dates: start: 201302, end: 201306
  2. HUMIRA [Suspect]
     Indication: PSORIATIC ARTHROPATHY
     Dosage: 1 DF, EVERY 2 WEEKS
     Route: 058
     Dates: start: 201206, end: 201212

REACTIONS (1)
  - Vulval cancer [Not Recovered/Not Resolved]
